FAERS Safety Report 7383276-0 (Version None)
Quarter: 2011Q1

REPORT INFORMATION
  Report Type: 
  Country: None (occurrence: None)
  Receive Date: 20110330
  Receipt Date: 20110324
  Transmission Date: 20110831
  Serious: Yes (Life-Threatening, Other)
  Sender: FDA-Public Use
  Company Number: PHHY2011US24463

PATIENT
  Sex: Female

DRUGS (2)
  1. DIOVAN [Suspect]
     Dosage: 80 MG, BID
     Route: 048
  2. COREG [Suspect]
     Dosage: 80 MG, QD

REACTIONS (4)
  - FEELING ABNORMAL [None]
  - DEAFNESS [None]
  - SOMNOLENCE [None]
  - DIZZINESS [None]
